FAERS Safety Report 24303333 (Version 1)
Quarter: 2024Q3

REPORT INFORMATION
  Report Type: Report from Study
  Country: GB (occurrence: GB)
  Receive Date: 20240910
  Receipt Date: 20240910
  Transmission Date: 20241016
  Serious: Yes (Other)
  Sender: BAYER
  Company Number: GB-BAYER-2024A128138

PATIENT
  Sex: Female

DRUGS (8)
  1. MOXIFLOXACIN [Suspect]
     Active Substance: MOXIFLOXACIN
  2. BEDAQUILINE [Concomitant]
     Active Substance: BEDAQUILINE
  3. CLOFAZIMINE [Concomitant]
     Active Substance: CLOFAZIMINE
  4. CAPREOMYCIN [Concomitant]
     Active Substance: CAPREOMYCIN
  5. LINEZOLID [Concomitant]
     Active Substance: LINEZOLID
  6. PRETOMANID [Concomitant]
     Active Substance: PRETOMANID
  7. LEVOFLOXACIN [Concomitant]
     Active Substance: LEVOFLOXACIN
  8. PYRAZINAMIDE [Concomitant]
     Active Substance: PYRAZINAMIDE

REACTIONS (3)
  - Abortion spontaneous [None]
  - Off label use [None]
  - Exposure during pregnancy [None]
